FAERS Safety Report 6096976-X (Version None)
Quarter: 2009Q1

REPORT INFORMATION
  Report Type: 
  Country: None (occurrence: None)
  Receive Date: 20090227
  Receipt Date: 20090217
  Transmission Date: 20090719
  Serious: Yes (Other)
  Sender: FDA-Public Use
  Company Number: GB-PFIZER INC-2009163870

PATIENT

DRUGS (4)
  1. ZYVOX [Suspect]
     Indication: STAPHYLOCOCCAL INFECTION
     Route: 048
  2. EFFEXOR [Interacting]
     Dosage: 75 MG, UNK
  3. VANCOMYCIN [Concomitant]
  4. RIFAMPICIN [Concomitant]

REACTIONS (3)
  - DRUG INTERACTION [None]
  - NERVOUS SYSTEM DISORDER [None]
  - SEROTONIN SYNDROME [None]
